FAERS Safety Report 6214877-0 (Version None)
Quarter: 2009Q2

REPORT INFORMATION
  Report Type: 
  Country: None (occurrence: None)
  Receive Date: 20090601
  Receipt Date: 20081112
  Transmission Date: 20091009
  Serious: Yes (Hospitalization, Other)
  Sender: FDA-Public Use
  Company Number: 277227

PATIENT
  Age: 53 Year
  Sex: Female
  Weight: 56.7 kg

DRUGS (6)
  1. ACTIVELLA [Suspect]
     Indication: MENOPAUSAL SYMPTOMS
     Dosage: ORAL
     Route: 048
     Dates: start: 20010501, end: 20010901
  2. PREMPHASE (PREMARIN;CYCRIN 14/14) [Suspect]
     Indication: MENOPAUSAL SYMPTOMS
     Dates: start: 19980301, end: 20000501
  3. COMBIPATCH [Suspect]
     Indication: MENOPAUSAL SYMPTOMS
     Dates: start: 20000501, end: 20001201
  4. ORTHO-PREFEST(ESTRADIOL, NORGESTIMATE) [Suspect]
     Indication: MENOPAUSAL SYMPTOMS
     Dates: start: 20010301, end: 20010501
  5. MEDROXYPROGESTERONE [Suspect]
     Indication: MENOPAUSAL SYMPTOMS
     Dates: start: 19950901, end: 20001001
  6. ORTHO-EST [Suspect]
     Indication: MENOPAUSAL SYMPTOMS
     Dates: start: 20000901, end: 20010301

REACTIONS (1)
  - BREAST CANCER [None]
